FAERS Safety Report 4562871-8 (Version None)
Quarter: 2005Q1

REPORT INFORMATION
  Report Type: 
  Country: None (occurrence: None)
  Receive Date: 20050121
  Receipt Date: 20050110
  Transmission Date: 20050727
  Serious: Yes (Other)
  Sender: FDA-Public Use
  Company Number: 2005010784

PATIENT
  Age: 16 Year
  Sex: Female
  Weight: 56.6996 kg

DRUGS (2)
  1. DEPO-PROVERA [Suspect]
     Indication: CONTRACEPTION
     Dosage: 150 MG (150 MG, 1ST INJECTION, EVERY 10-13 WEEKS); INTRAMUSCULAR, SEE IMAGE
     Route: 030
     Dates: start: 20030127, end: 20030127
  2. DEPO-PROVERA [Suspect]
     Indication: CONTRACEPTION
     Dosage: 150 MG (150 MG, 1ST INJECTION, EVERY 10-13 WEEKS); INTRAMUSCULAR, SEE IMAGE
     Route: 030
     Dates: start: 20040920, end: 20040920

REACTIONS (2)
  - CHEST PAIN [None]
  - HYPERTENSION [None]
